FAERS Safety Report 9252637 (Version 1)
Quarter: 2013Q2

REPORT INFORMATION
  Report Type: Spontaneous
  Country: US (occurrence: US)
  Receive Date: 20130424
  Receipt Date: 20130424
  Transmission Date: 20140414
  Serious: Yes (Death, Hospitalization)
  Sender: FDA-Public Use
  Company Number: US-GLAXOSMITHKLINE-A1020359A

PATIENT
  Age: 72 Year
  Sex: Male

DRUGS (7)
  1. CARVEDILOL [Suspect]
     Indication: PRODUCT USED FOR UNKNOWN INDICATION
     Dosage: 3.125MG TWICE PER DAY
     Route: 048
     Dates: start: 201107
  2. SIMVASTATIN [Concomitant]
  3. VITAMIN D [Concomitant]
  4. LISINOPRIL [Concomitant]
  5. FINASTERIDE [Concomitant]
  6. ASPIRIN [Concomitant]
  7. LEVOTHYROXINE [Concomitant]

REACTIONS (9)
  - Road traffic accident [Unknown]
  - Cardiac pacemaker insertion [Unknown]
  - Implantable defibrillator insertion [Unknown]
  - Cardiomyopathy [Fatal]
  - Syncope [Unknown]
  - Dizziness [Unknown]
  - Fatigue [Unknown]
  - Asthenia [Unknown]
  - Posture abnormal [Unknown]
